FAERS Safety Report 20821834 (Version 1)
Quarter: 2022Q2

REPORT INFORMATION
  Report Type: Spontaneous
  Country: PK (occurrence: PK)
  Receive Date: 20220512
  Receipt Date: 20220512
  Transmission Date: 20220720
  Serious: Yes (Other)
  Sender: FDA-Public Use
  Company Number: PK-MSNLABS-2022MSNLIT00468

PATIENT

DRUGS (5)
  1. MOXIFLOXACIN HYDROCHLORIDE [Suspect]
     Active Substance: MOXIFLOXACIN HYDROCHLORIDE
     Indication: Lymph node tuberculosis
     Route: 065
  2. ISONIAZID [Suspect]
     Active Substance: ISONIAZID
     Indication: Lymph node tuberculosis
     Route: 065
  3. RIFAMPIN [Suspect]
     Active Substance: RIFAMPIN
     Indication: Lymph node tuberculosis
     Route: 065
  4. PYRAZINAMIDE [Suspect]
     Active Substance: PYRAZINAMIDE
     Indication: Lymph node tuberculosis
     Route: 065
  5. PYRIDOXINE [Suspect]
     Active Substance: PYRIDOXINE
     Indication: Lymph node tuberculosis
     Route: 065

REACTIONS (1)
  - Jarisch-Herxheimer reaction [Unknown]
